FAERS Safety Report 10589308 (Version 2)
Quarter: 2014Q4

REPORT INFORMATION
  Report Type: Spontaneous
  Country: US (occurrence: US)
  Receive Date: 20141118
  Receipt Date: 20141118
  Transmission Date: 20150529
  Serious: Yes (Other)
  Sender: FDA-Public Use
  Company Number: US-UNITED THERAPEUTICS-UNT-2014-007880

PATIENT
  Sex: Male
  Weight: 111.11 kg

DRUGS (3)
  1. TYVASO [Suspect]
     Active Substance: TREPROSTINIL
     Indication: COR PULMONALE CHRONIC
     Dosage: 72-90 ?G, QID
     Dates: start: 20140318
  2. ADCIRCA [Concomitant]
     Active Substance: TADALAFIL
     Indication: PRODUCT USED FOR UNKNOWN INDICATION
  3. TYVASO [Suspect]
     Active Substance: TREPROSTINIL
     Indication: PULMONARY HYPERTENSION
     Dosage: 72-108 ?G, QID
     Dates: start: 20140318

REACTIONS (2)
  - Hepatic cancer [Unknown]
  - Fatigue [Unknown]

NARRATIVE: CASE EVENT DATE: 2014
